FAERS Safety Report 10348804 (Version 1)
Quarter: 2014Q3

REPORT INFORMATION
  Report Type: Spontaneous
  Country: GB (occurrence: None)
  Receive Date: 20140725
  Receipt Date: 20140725
  Transmission Date: 20150326
  Serious: Yes (Disabling)
  Sender: FDA-Public Use
  Company Number: AUR-APL-2014-07876

PATIENT
  Age: 84 Year
  Sex: Female
  Weight: 74 kg

DRUGS (19)
  1. AMOXICILLIN (AMOXICILLIN) [Concomitant]
     Active Substance: AMOXICILLIN
  2. CIPROFLOXACIN. [Suspect]
     Active Substance: CIPROFLOXACIN
     Indication: PRODUCT USED FOR UNKNOWN INDICATION
     Dates: start: 20140627
  3. DIGOXIN (DIGOXIN) [Concomitant]
     Active Substance: DIGOXIN
  4. RISEDRONATE SODIUM (RISEDRONATE SODIUM) [Concomitant]
  5. FUROSEMIDE (FUROSEMIDE) [Concomitant]
     Active Substance: FUROSEMIDE
  6. CANDESARTAN (CANDESARTAN) [Concomitant]
     Active Substance: CANDESARTAN
  7. CO-AMOXICLAV (AMOXICILLIN SODIUM, CLAVULANATE POTASSIUIM) [Concomitant]
  8. NYSTATIN (NYSTATIN) [Concomitant]
     Active Substance: NYSTATIN
  9. TIOTROPIUM (TIOTROPIUM) [Concomitant]
  10. DOXYCYCLINE. [Concomitant]
     Active Substance: DOXYCYCLINE
  11. PREDNISOLONE (PREDNISOLONE) [Concomitant]
     Active Substance: PREDNISOLONE
  12. CALCICHEW D3 (CALCIUM CARBONATE, COLECALCIFEROL) [Concomitant]
  13. CLARITHROMYCIN  (CLARITHROMYCIN) [Concomitant]
     Active Substance: CLARITHROMYCIN
  14. WARFARIN SODIUM (WARFARIN SODIUM) [Concomitant]
     Active Substance: WARFARIN SODIUM
  15. ALLOPURINOL (ALLOPURINOL) [Concomitant]
     Active Substance: ALLOPURINOL
  16. BISOPROLOL (BISOPROLOL) [Concomitant]
     Active Substance: BISOPROLOL
  17. EPADERM (EMULSIFYING WAX, PARAFFIN, LIQUID, PETROLATUM) [Concomitant]
  18. FLUCONAZOLE (FLUCONAZOLE) [Concomitant]
     Active Substance: FLUCONAZOLE
  19. MOMETASONE (MOMETASONE) [Concomitant]

REACTIONS (1)
  - Tendon pain [None]

NARRATIVE: CASE EVENT DATE: 20140701
